FAERS Safety Report 7630780-3 (Version None)
Quarter: 2011Q3

REPORT INFORMATION
  Report Type: 
  Country: None (occurrence: None)
  Receive Date: 20110722
  Receipt Date: 20110718
  Transmission Date: 20111222
  Serious: Yes (Death, Other)
  Sender: FDA-Public Use
  Company Number: US-ASTRAZENECA-2011SE38864

PATIENT
  Sex: Male

DRUGS (1)
  1. VIMOVO [Suspect]
     Indication: ARTHRITIS
     Route: 048

REACTIONS (2)
  - LYMPHOMA [None]
  - NEOPLASM MALIGNANT [None]
